FAERS Safety Report 8390133-X (Version None)
Quarter: 2012Q2

REPORT INFORMATION
  Report Type: 
  Country: None (occurrence: None)
  Receive Date: 20120529
  Receipt Date: 20120521
  Transmission Date: 20120825
  Serious: Yes (Other)
  Sender: FDA-Public Use
  Company Number: BR-BAYER-2012-050565

PATIENT
  Age: 32 Year
  Sex: Female

DRUGS (5)
  1. RETEMIC [Concomitant]
     Indication: URINARY INCONTINENCE
     Dosage: 10 IN THE MORNING
     Route: 048
  2. REMERON [Concomitant]
     Indication: DEPRESSION
     Dosage: 1 DF, QD
     Route: 048
  3. VITAMIN C [Concomitant]
     Dosage: 1 DF, QD
     Route: 048
  4. BETASERON [Suspect]
     Indication: MULTIPLE SCLEROSIS
     Dosage: 1 ML, QOD
     Route: 058
  5. RETEMIC [Concomitant]
     Dosage: 5 AT NIGHT
     Route: 048

REACTIONS (5)
  - SKIN NECROSIS [None]
  - WOUND INFECTION [None]
  - SKIN MASS [None]
  - FEELING HOT [None]
  - PYREXIA [None]
